FAERS Safety Report 13362875 (Version 4)
Quarter: 2017Q3

REPORT INFORMATION
  Report Type: Spontaneous
  Country: FR (occurrence: FR)
  Receive Date: 20170323
  Receipt Date: 20170914
  Transmission Date: 20171127
  Serious: Yes (Hospitalization)
  Sender: FDA-Public Use
  Company Number: PHHY2017FR041590

PATIENT
  Age: 66 Year
  Sex: Male

DRUGS (7)
  1. COTAREG [Suspect]
     Active Substance: HYDROCHLOROTHIAZIDE\VALSARTAN
     Indication: HYPERTENSION
     Dosage: 1 DF, QD (HCT 25 MG, VALSARTAN 160 MG)
     Route: 048
     Dates: end: 201612
  2. HUMIRA [Suspect]
     Active Substance: ADALIMUMAB
     Indication: PSORIASIS
     Dosage: 1 DF, BIW ( 1 INJECTION PER 15 DAYS)
     Route: 058
     Dates: start: 2009, end: 201612
  3. SERETIDE [Suspect]
     Active Substance: FLUTICASONE PROPIONATE\SALMETEROL XINAFOATE
     Indication: ASTHMA
     Dosage: 1 DF, QD (FLUTICASONE PROPIONATE 500 UG, SALMETEROL XINAFOATE 50 UG)
     Route: 055
  4. BUDESONIDE. [Suspect]
     Active Substance: BUDESONIDE
     Indication: HYPERSENSITIVITY
     Dosage: 4 DF, QD (MORNING)
     Route: 045
  5. BROMAZEPAM [Suspect]
     Active Substance: BROMAZEPAM
     Indication: PRODUCT USED FOR UNKNOWN INDICATION
     Dosage: 6 MG, QD
     Route: 048
  6. MIANSERIN [Suspect]
     Active Substance: MIANSERIN
     Indication: DEPRESSION
     Dosage: 45 MG, QD
     Route: 048
  7. SALBUTAMOL [Suspect]
     Active Substance: ALBUTEROL
     Indication: ASTHMA
     Dosage: 1 DF, PRN
     Route: 055

REACTIONS (1)
  - Pemphigoid [Not Recovered/Not Resolved]

NARRATIVE: CASE EVENT DATE: 201609
